FAERS Safety Report 15820937 (Version 1)
Quarter: 2019Q1

REPORT INFORMATION
  Report Type: Spontaneous
  Country: CH (occurrence: CH)
  Receive Date: 20190114
  Receipt Date: 20190114
  Transmission Date: 20190417
  Serious: Yes (Other)
  Sender: FDA-Public Use
  Company Number: CH-ROCHE-2240761

PATIENT
  Age: 47 Year
  Sex: Male

DRUGS (8)
  1. COTELLIC [Interacting]
     Active Substance: COBIMETINIB
     Route: 065
     Dates: start: 20170318
  2. EPACADOSTAT [Interacting]
     Active Substance: EPACADOSTAT
     Indication: METASTATIC MALIGNANT MELANOMA
     Route: 065
     Dates: start: 20180208
  3. COTELLIC [Interacting]
     Active Substance: COBIMETINIB
     Indication: METASTATIC MALIGNANT MELANOMA
     Route: 065
     Dates: start: 20170306
  4. COTELLIC [Interacting]
     Active Substance: COBIMETINIB
     Route: 065
     Dates: start: 20170317
  5. ZELBORAF [Suspect]
     Active Substance: VEMURAFENIB
     Indication: METASTATIC MALIGNANT MELANOMA
     Route: 065
     Dates: start: 20170306
  6. ZELBORAF [Interacting]
     Active Substance: VEMURAFENIB
     Route: 065
     Dates: start: 20170317
  7. ZELBORAF [Interacting]
     Active Substance: VEMURAFENIB
     Route: 065
     Dates: start: 20170318
  8. PEMBROLIZUMAB. [Interacting]
     Active Substance: PEMBROLIZUMAB
     Indication: METASTATIC MALIGNANT MELANOMA
     Route: 065
     Dates: start: 20180208

REACTIONS (2)
  - Drug interaction [Unknown]
  - Cytokine release syndrome [Recovering/Resolving]
